FAERS Safety Report 7155310-4 (Version None)
Quarter: 2010Q4

REPORT INFORMATION
  Report Type: 
  Country: None (occurrence: None)
  Receive Date: 20101214
  Receipt Date: 20091113
  Transmission Date: 20110411
  Serious: No
  Sender: FDA-Public Use
  Company Number: US-AMGEN-TCS374408

PATIENT

DRUGS (10)
  1. ENBREL [Suspect]
     Indication: PSORIASIS
     Dosage: 50 MG, QWK
     Dates: start: 20090601
  2. CYCLOSPORINE [Concomitant]
     Dosage: UNK UNK, UNK
  3. ACETAMINOPHEN [Concomitant]
     Dosage: UNK UNK, UNK
  4. VAGIFEM [Concomitant]
     Dosage: UNK UNK, UNK
  5. ESTROGENS CONJUGATED [Concomitant]
     Dosage: UNK UNK, UNK
  6. VERAPAMIL [Concomitant]
     Dosage: UNK UNK, UNK
  7. SUMATRIPTAN [Concomitant]
     Dosage: UNK UNK, UNK
  8. FLUOCINONIDE [Concomitant]
     Dosage: UNK UNK, UNK
  9. TRIAMCINOLONE [Concomitant]
     Dosage: UNK UNK, UNK
  10. CLOBETASOL [Concomitant]
     Dosage: UNK UNK, UNK

REACTIONS (1)
  - PSORIASIS [None]
